FAERS Safety Report 5513482-9 (Version None)
Quarter: 2007Q4

REPORT INFORMATION
  Report Type: 
  Country: None (occurrence: None)
  Receive Date: 20071112
  Receipt Date: 20071029
  Transmission Date: 20080405
  Serious: Yes (Other)
  Sender: FDA-Public Use
  Company Number: DE-AMGEN-UK250995

PATIENT

DRUGS (1)
  1. NEULASTA [Suspect]
     Indication: DRUG USE FOR UNKNOWN INDICATION
     Route: 065

REACTIONS (2)
  - LEUKOCYTOSIS [None]
  - THROMBOSIS [None]
